FAERS Safety Report 7490456-2 (Version None)
Quarter: 2011Q2

REPORT INFORMATION
  Report Type: 
  Country: None (occurrence: None)
  Receive Date: 20110519
  Receipt Date: 20110506
  Transmission Date: 20111010
  Serious: Yes (Hospitalization, Other)
  Sender: FDA-Public Use
  Company Number: US-BAYER-2011-042549

PATIENT
  Sex: Female
  Weight: 81.633 kg

DRUGS (17)
  1. YAZ [Suspect]
     Indication: ACNE
  2. SEROQUEL [Concomitant]
     Indication: BIPOLAR DISORDER
     Dosage: 300 UNK, UNK
  3. HALDOL [Concomitant]
  4. ORTHO TRI-CYCLEN [Concomitant]
     Indication: CONTRACEPTION
     Dosage: UNK
     Dates: start: 20010101
  5. ZOLOFT [Concomitant]
     Indication: BIPOLAR DISORDER
  6. ORTHO TRI-CYCLEN [Concomitant]
     Indication: ACNE
     Dosage: UNK
     Dates: start: 20081201, end: 20090701
  7. WELLBUTRIN [Concomitant]
  8. PAXIL [Concomitant]
  9. LAMICTAL [Concomitant]
     Indication: BIPOLAR DISORDER
     Dosage: 200 MG, UNK
     Route: 048
  10. DIPHENHYDRAMINE HCL [Concomitant]
     Dosage: 50 MG, UNK
     Route: 048
  11. LEVOTHYROXINE SODIUM [Concomitant]
     Dosage: 100 ?G, UNK
     Route: 048
  12. NAPROXEN [Concomitant]
     Dosage: 500 MG, UNK
     Route: 048
  13. YAZ [Suspect]
     Indication: CONTRACEPTION
     Dosage: UNK, QD
     Route: 048
     Dates: start: 20010101, end: 20090101
  14. AMPICILLIN SODIUM [Concomitant]
     Dosage: 500 MG, UNK
     Route: 048
  15. OMEPRAZOLE [Concomitant]
     Dosage: 20 MG, UNK
     Route: 048
  16. VALACICLOVIR [Concomitant]
     Dosage: 500 MG, UNK
     Route: 048
  17. LITHIUM CARBONATE [Concomitant]

REACTIONS (2)
  - GALLBLADDER DISORDER [None]
  - ABDOMINAL PAIN [None]
